FAERS Safety Report 9096085 (Version 1)
Quarter: 2013Q1

REPORT INFORMATION
  Report Type: Report from Study
  Country: US (occurrence: US)
  Receive Date: 20130207
  Receipt Date: 20130207
  Transmission Date: 20140127
  Serious: Yes (Hospitalization)
  Sender: FDA-Public Use
  Company Number: US-ROCHE-1185169

PATIENT
  Age: 62 Year
  Sex: Female
  Weight: 83.4 kg

DRUGS (9)
  1. RITUXIMAB [Suspect]
     Indication: CHRONIC LYMPHOCYTIC LEUKAEMIA
     Route: 042
     Dates: start: 20121228
  2. TRU-016 [Suspect]
     Indication: CHRONIC LYMPHOCYTIC LEUKAEMIA
     Route: 042
     Dates: start: 20121227
  3. ALLOPURINOL [Concomitant]
     Route: 065
     Dates: start: 20121220
  4. BACTRIM DS [Concomitant]
     Route: 065
     Dates: start: 20121220
  5. ACYCLOVIR SODIUM [Concomitant]
     Route: 065
     Dates: start: 20121220
  6. COLACE [Concomitant]
  7. PROTONIX [Concomitant]
  8. PREMARIN [Concomitant]
  9. PREDNISONE [Concomitant]

REACTIONS (1)
  - Lymph node pain [Recovered/Resolved]
